FAERS Safety Report 8502071 (Version 3)
Quarter: 2013Q4

REPORT INFORMATION
  Report Type: Report from Study
  Country: PL (occurrence: PL)
  Receive Date: 20120410
  Receipt Date: 20131104
  Transmission Date: 20140711
  Serious: Yes (Death, Hospitalization)
  Sender: FDA-Public Use
  Company Number: PL-GLAXOSMITHKLINE-Z0014693B

PATIENT
  Age: 73 Year
  Sex: Female
  Weight: 61 kg

DRUGS (3)
  1. OFATUMUMAB [Suspect]
     Indication: CHRONIC LYMPHOCYTIC LEUKAEMIA REFRACTORY
     Route: 042
     Dates: start: 20120206, end: 20120320
  2. BISEPTOL [Concomitant]
     Indication: INFECTION PROPHYLAXIS
     Dosage: 480MG TWICE PER DAY
     Route: 048
     Dates: start: 20120220, end: 20120325
  3. HEVIRAN [Concomitant]
     Indication: INFECTION PROPHYLAXIS
     Dosage: 400MG TWICE PER DAY
     Route: 048
     Dates: start: 20120220, end: 20120325

REACTIONS (2)
  - Pneumonia [Recovered/Resolved]
  - Cardiac failure [Fatal]
